FAERS Safety Report 8139526-6 (Version None)
Quarter: 2012Q1

REPORT INFORMATION
  Report Type: 
  Country: None (occurrence: None)
  Receive Date: 20120215
  Receipt Date: 20120206
  Transmission Date: 20120608
  Serious: Yes (Hospitalization)
  Sender: FDA-Public Use
  Company Number: IT-ASTRAZENECA-2012SE08091

PATIENT
  Age: 25854 Day
  Sex: Female

DRUGS (5)
  1. FLUVOXAMINE MALEATE [Suspect]
     Indication: DEPRESSION
     Route: 048
     Dates: start: 19970411
  2. FLUTICASONE FUROATE [Concomitant]
     Dosage: 27,5 MCG/NASAL SPRAY SUSPENSION
     Route: 045
  3. LORAZEPAM [Concomitant]
     Route: 048
  4. SYMBICORT [Suspect]
     Indication: ASTHMA EXERCISE INDUCED
     Dosage: 160/4.5 MCG 2 DF INTERMITTENT
     Route: 055
     Dates: start: 20101222
  5. VENTOLIN [Suspect]
     Indication: ASTHMA EXERCISE INDUCED
     Dosage: 100 MCG SUSPENTION FOR INHALATION 2 DF AS REQUIRED
     Route: 055
     Dates: start: 20101222

REACTIONS (1)
  - SYNCOPE [None]
